FAERS Safety Report 8122364-8 (Version None)
Quarter: 2012Q1

REPORT INFORMATION
  Report Type: 
  Country: None (occurrence: None)
  Receive Date: 20120208
  Receipt Date: 20120207
  Transmission Date: 20120608
  Serious: Yes (Hospitalization)
  Sender: FDA-Public Use
  Company Number: US-GLAXOSMITHKLINE-A0903069A

PATIENT
  Age: 46 Year
  Sex: Female
  Weight: 119.1 kg

DRUGS (1)
  1. AVANDIA [Suspect]
     Indication: DIABETES MELLITUS
     Dosage: 8MG PER DAY
     Route: 048
     Dates: start: 20020101, end: 20080820

REACTIONS (3)
  - ARTERIOSCLEROSIS CORONARY ARTERY [None]
  - ANGINA PECTORIS [None]
  - ACUTE MYOCARDIAL INFARCTION [None]
